FAERS Safety Report 4573631-6 (Version None)
Quarter: 2005Q1

REPORT INFORMATION
  Report Type: 
  Country: None (occurrence: None)
  Receive Date: 20050203
  Receipt Date: 20050120
  Transmission Date: 20050727
  Serious: Yes (Hospitalization)
  Sender: FDA-Public Use
  Company Number: 212033

PATIENT
  Age: 58 Year
  Sex: Female
  Weight: 70 kg

DRUGS (3)
  1. HERCEPTIN [Suspect]
     Indication: BREAST CANCER
     Dosage: 140 MG, INTRAVENOUS
     Route: 042
     Dates: start: 20040906, end: 20041227
  2. LONAFARNIB (LONAFARNIB) [Suspect]
     Indication: BREAST CANCER
     Dosage: 150 MG, ORAL
     Route: 048
     Dates: start: 20040929, end: 20050102
  3. PACLITAXEL [Suspect]
     Indication: BREAST CANCER
     Dosage: 315 MG, INTRAVENOUS
     Route: 042
     Dates: start: 20040906, end: 20041227

REACTIONS (1)
  - PULMONARY EMBOLISM [None]
